FAERS Safety Report 20407153 (Version 1)
Quarter: 2022Q1

REPORT INFORMATION
  Report Type: Other
  Country: None (occurrence: US)
  Receive Date: 20220131
  Receipt Date: 20220131
  Transmission Date: 20220423
  Serious: Yes (Hospitalization)
  Sender: FDA-Public Use
  Company Number: US-Appco Pharma LLC-2124470

PATIENT
  Age: 39 Year
  Sex: Male

DRUGS (1)
  1. HYDROXYCHLOROQUINE SULFATE [Suspect]
     Active Substance: HYDROXYCHLOROQUINE SULFATE
     Indication: COVID-19
     Route: 065

REACTIONS (2)
  - Methaemoglobinaemia [Recovered/Resolved]
  - Off label use [Unknown]
